FAERS Safety Report 7347542-7 (Version None)
Quarter: 2011Q1

REPORT INFORMATION
  Report Type: 
  Country: None (occurrence: None)
  Receive Date: 20110311
  Receipt Date: 20110225
  Transmission Date: 20110831
  Serious: Yes (Hospitalization)
  Sender: FDA-Public Use
  Company Number: DE-BRISTOL-MYERS SQUIBB COMPANY-15589476

PATIENT
  Age: 68 Year
  Sex: Male
  Weight: 104 kg

DRUGS (8)
  1. CORTICOSTEROID [Concomitant]
     Indication: PREMEDICATION
     Dosage: AGAIN ON 13DEC10
     Route: 048
     Dates: start: 20101129
  2. ANTIHISTAMINE DRUGS [Concomitant]
     Indication: PREMEDICATION
     Dosage: AGAIN ON 13DEC10
     Dates: start: 20101129
  3. ONDANSETRON [Concomitant]
     Indication: PREMEDICATION
     Dosage: AGAIN ON 13DEC10
     Dates: start: 20101129
  4. FLUOROURACIL [Concomitant]
     Indication: COLORECTAL CANCER
     Dosage: 400MG/M2 ON DAY 1,2400MG/M2 ON 1 AND 2,CONTINUOUS INFUSION OVER 22-24 HR
     Route: 040
     Dates: start: 20101129
  5. IRINOTECAN [Concomitant]
     Indication: COLORECTAL CANCER
     Route: 042
     Dates: start: 20101129
  6. BUTYLSCOPOLAMINE [Concomitant]
     Indication: PREMEDICATION
     Dosage: AGAIN 0N 13DEC10
     Dates: start: 20101129
  7. ERBITUX [Suspect]
     Indication: COLORECTAL CANCER
     Dosage: INFUSION
     Route: 042
     Dates: start: 20101129, end: 20110124
  8. CALCIUM FOLINATE [Concomitant]
     Indication: COLORECTAL CANCER
     Route: 042
     Dates: start: 20101129

REACTIONS (6)
  - INTESTINAL OBSTRUCTION [None]
  - GASTROINTESTINAL TOXICITY [None]
  - COLITIS [None]
  - DEHYDRATION [None]
  - ENTERITIS [None]
  - GENERAL PHYSICAL HEALTH DETERIORATION [None]
